FAERS Safety Report 14588013 (Version 4)
Quarter: 2021Q3

REPORT INFORMATION
  Report Type: Report from Study
  Country: FR (occurrence: FR)
  Receive Date: 20180301
  Receipt Date: 20210715
  Transmission Date: 20211014
  Serious: Yes (Death, Life-Threatening, Other)
  Sender: FDA-Public Use
  Company Number: FR-JAZZ-2018-FR-003570

PATIENT

DRUGS (4)
  1. DEFITELIO [Suspect]
     Active Substance: DEFIBROTIDE SODIUM
     Indication: VENOOCCLUSIVE LIVER DISEASE
     Dosage: 25 MILLIGRAM/KILOGRAM/DAY
     Dates: start: 20170114, end: 20170126
  2. LASILIX [FUROSEMIDE] [Concomitant]
     Active Substance: FUROSEMIDE
     Indication: VENOOCCLUSIVE DISEASE
     Dosage: 1 MILLIGRAM/KILOGRAM/DAY
  3. ALBUMIN [Concomitant]
     Active Substance: ALBUMIN HUMAN
     Indication: VENOOCCLUSIVE DISEASE
     Dosage: 1 GRAM/KILLOGRAM/DAY
  4. SOLUDACTONE [Concomitant]
     Active Substance: CANRENOATE POTASSIUM\TROMETHAMINE
     Indication: VENOOCCLUSIVE DISEASE
     Dosage: 10 MILLIGRAM/KILOGRAM/DAY

REACTIONS (3)
  - Acute lymphocytic leukaemia recurrent [Fatal]
  - Status epilepticus [Unknown]
  - Subdural haematoma [Unknown]

NARRATIVE: CASE EVENT DATE: 20170123
